FAERS Safety Report 24300757 (Version 1)
Quarter: 2024Q3

REPORT INFORMATION
  Report Type: Spontaneous
  Country: US (occurrence: US)
  Receive Date: 20240910
  Receipt Date: 20240910
  Transmission Date: 20241017
  Serious: Yes (Other)
  Sender: NOVO NORDISK
  Company Number: US-NOVOPROD-1278529

PATIENT
  Age: 66 Year
  Sex: Male

DRUGS (2)
  1. OZEMPIC [Suspect]
     Active Substance: SEMAGLUTIDE
     Indication: Type 2 diabetes mellitus
     Dosage: 0.5 MG, QW
     Route: 058
     Dates: start: 2022
  2. NovoFine Plus 4mm (32G) [Concomitant]
     Indication: Device therapy
     Dosage: UNK
     Route: 058
     Dates: start: 2022

REACTIONS (4)
  - Surgery [Unknown]
  - Injection site discolouration [Recovered/Resolved]
  - Injection site mass [Recovered/Resolved]
  - Anxiety [Not Recovered/Not Resolved]

NARRATIVE: CASE EVENT DATE: 20240829
